FAERS Safety Report 24645559 (Version 1)
Quarter: 2024Q4

REPORT INFORMATION
  Report Type: Spontaneous
  Country: US (occurrence: US)
  Receive Date: 20241121
  Receipt Date: 20241121
  Transmission Date: 20250114
  Serious: Yes (Life-Threatening, Hospitalization, Other)
  Sender: AUROBINDO
  Company Number: US-MLMSERVICE-20241031-PI246847-00149-1

PATIENT
  Age: 81 Year
  Sex: Male

DRUGS (4)
  1. FLECAINIDE [Suspect]
     Active Substance: FLECAINIDE
     Indication: Atrial fibrillation
     Dosage: 200 MILLIGRAM, TWO TIMES A DAY(HIGH DOSE OF FLECAINIDE (200 MG 2 TIMES DAILY))
     Route: 065
  2. AMLODIPINE [Concomitant]
     Active Substance: AMLODIPINE BESYLATE
     Indication: Product used for unknown indication
     Dosage: UNK
     Route: 065
  3. APIXABAN [Concomitant]
     Active Substance: APIXABAN
     Indication: Product used for unknown indication
     Dosage: UNK
     Route: 065
  4. TORSEMIDE [Concomitant]
     Active Substance: TORSEMIDE
     Indication: Product used for unknown indication
     Dosage: UNK
     Route: 065

REACTIONS (13)
  - Acute kidney injury [Recovering/Resolving]
  - Cardiac failure acute [Recovered/Resolved]
  - Heart failure with preserved ejection fraction [Recovered/Resolved]
  - Electrocardiogram QT prolonged [Recovered/Resolved]
  - Electrocardiogram QRS complex prolonged [Recovered/Resolved]
  - Ventricular tachycardia [Recovered/Resolved]
  - Atrioventricular block complete [Recovering/Resolving]
  - Cardiac arrest [Recovered/Resolved]
  - Ventricular arrhythmia [Recovered/Resolved]
  - Diastolic dysfunction [Recovered/Resolved]
  - Toxicity to various agents [Recovered/Resolved]
  - Device capturing issue [Recovered/Resolved]
  - Overdose [Recovered/Resolved]
